FAERS Safety Report 4652452-X (Version None)
Quarter: 2005Q2

REPORT INFORMATION
  Report Type: 
  Country: None (occurrence: None)
  Receive Date: 20050502
  Receipt Date: 20050419
  Transmission Date: 20051028
  Serious: Yes (Other)
  Sender: FDA-Public Use
  Company Number: 2005054446

PATIENT
  Sex: Female
  Weight: 65.7716 kg

DRUGS (1)
  1. ROGAINE [Suspect]
     Indication: HYPOTRICHOSIS
     Dosage: 1 ML BID, TOPICAL
     Route: 061
     Dates: start: 20020101

REACTIONS (1)
  - LYMPHOMA [None]
